FAERS Safety Report 6253964-8 (Version None)
Quarter: 2009Q3

REPORT INFORMATION
  Report Type: 
  Country: None (occurrence: None)
  Receive Date: 20090702
  Receipt Date: 20090626
  Transmission Date: 20100115
  Serious: Yes (Other)
  Sender: FDA-Public Use
  Company Number: TR-JNJFOC-20090609616

PATIENT
  Age: 55 Year
  Sex: Female

DRUGS (3)
  1. DURAGESIC-100 [Suspect]
  2. DURAGESIC-100 [Suspect]
  3. DURAGESIC-100 [Suspect]
     Indication: PAIN

REACTIONS (3)
  - DRUG DEPENDENCE [None]
  - EMOTIONAL DISTRESS [None]
  - INCORRECT DRUG ADMINISTRATION DURATION [None]
